FAERS Safety Report 17965435 (Version 1)
Quarter: 2020Q2

REPORT INFORMATION
  Report Type: Spontaneous
  Country: PT (occurrence: PT)
  Receive Date: 20200630
  Receipt Date: 20200630
  Transmission Date: 20200714
  Serious: Yes (Other)
  Sender: FDA-Public Use
  Company Number: PT-JNJFOC-20190111669

PATIENT
  Age: 47 Year
  Sex: Female

DRUGS (12)
  1. NEVIRAPINE. [Suspect]
     Active Substance: NEVIRAPINE
     Indication: HIV INFECTION
     Route: 065
     Dates: start: 2011
  2. TENOFOVIR [Suspect]
     Active Substance: TENOFOVIR
     Indication: HIV INFECTION
     Route: 048
     Dates: start: 201102, end: 201102
  3. ABACAVIR. [Concomitant]
     Active Substance: ABACAVIR
     Indication: HIV INFECTION
     Route: 065
  4. LAMIVUDINE. [Suspect]
     Active Substance: LAMIVUDINE
     Indication: HIV INFECTION
     Route: 065
  5. EMTRICITABINE [Suspect]
     Active Substance: EMTRICITABINE
     Indication: HIV INFECTION
     Route: 065
     Dates: start: 2011
  6. DARUNAVIR [Suspect]
     Active Substance: DARUNAVIR
     Indication: ANTIVIRAL TREATMENT
     Route: 048
  7. DARUNAVIR [Suspect]
     Active Substance: DARUNAVIR
     Route: 048
  8. RITONAVIR. [Suspect]
     Active Substance: RITONAVIR
     Indication: HIV INFECTION
     Route: 065
  9. EMTRICITABINE [Suspect]
     Active Substance: EMTRICITABINE
     Route: 065
     Dates: start: 201103, end: 2011
  10. NEVIRAPINE. [Suspect]
     Active Substance: NEVIRAPINE
     Route: 065
     Dates: start: 201102, end: 201102
  11. EMTRICITABINE [Suspect]
     Active Substance: EMTRICITABINE
     Route: 065
     Dates: start: 201102, end: 201102
  12. RITONAVIR. [Suspect]
     Active Substance: RITONAVIR
     Indication: ANTIVIRAL TREATMENT
     Route: 065

REACTIONS (5)
  - Eyelid oedema [Recovered/Resolved]
  - Hypersensitivity [Unknown]
  - Skin exfoliation [Recovered/Resolved]
  - Drug hypersensitivity [Unknown]
  - Rash pruritic [Recovered/Resolved]

NARRATIVE: CASE EVENT DATE: 201102
